FAERS Safety Report 13682397 (Version 1)
Quarter: 2017Q2

REPORT INFORMATION
  Report Type: Spontaneous
  Country: US (occurrence: US)
  Receive Date: 20170623
  Receipt Date: 20170623
  Transmission Date: 20170830
  Serious: No
  Sender: FDA-Public Use
  Company Number: US-IPSEN BIOPHARMACEUTICALS, INC.-2016-06794

PATIENT
  Age: 68 Year
  Sex: Female

DRUGS (2)
  1. DYSPORT [Suspect]
     Active Substance: ABOBOTULINUMTOXINA
     Indication: SKIN WRINKLING
     Dosage: 60 IU
     Route: 065
     Dates: start: 20160523, end: 20160523
  2. DYSPORT [Suspect]
     Active Substance: ABOBOTULINUMTOXINA
     Indication: PRODUCT USE IN UNAPPROVED INDICATION
     Dosage: 60 IU
     Route: 065
     Dates: start: 20160613, end: 20160613

REACTIONS (4)
  - Incorrect drug administration duration [Unknown]
  - Drug ineffective [Unknown]
  - Product preparation error [Unknown]
  - Overdose [Unknown]
